FAERS Safety Report 8443294 (Version 10)
Quarter: 2014Q3

REPORT INFORMATION
  Report Type: Spontaneous
  Country: US (occurrence: US)
  Receive Date: 20120306
  Receipt Date: 20140905
  Transmission Date: 20150326
  Serious: Yes (Hospitalization, Other)
  Sender: FDA-Public Use
  Company Number: US-MERCK-1203USA00315

PATIENT
  Sex: Female
  Weight: 70.75 kg

DRUGS (7)
  1. ALENDRONATE SODIUM. [Suspect]
     Active Substance: ALENDRONATE SODIUM
     Dosage: 70 MG, UNK
     Route: 048
     Dates: start: 20080326, end: 20110321
  2. FOSAMAX [Suspect]
     Active Substance: ALENDRONATE SODIUM
     Indication: PROPHYLAXIS
     Dosage: 70 MG, UNK
     Route: 048
  3. FOSAMAX [Suspect]
     Active Substance: ALENDRONATE SODIUM
     Indication: OSTEOPOROSIS
  4. FOSAMAX [Suspect]
     Active Substance: ALENDRONATE SODIUM
     Indication: PROPHYLAXIS
     Route: 048
  5. FOSAMAX [Suspect]
     Active Substance: ALENDRONATE SODIUM
     Indication: BONE LOSS
  6. FOSAMAX [Suspect]
     Active Substance: ALENDRONATE SODIUM
     Indication: OSTEOPOROSIS
  7. FOSAMAX [Suspect]
     Active Substance: ALENDRONATE SODIUM
     Indication: BONE LOSS
     Dosage: 70 MG, UNK
     Route: 048
     Dates: start: 20050118, end: 200801

REACTIONS (58)
  - Fall [Unknown]
  - Cholecystectomy [Unknown]
  - Hyperlipidaemia [Unknown]
  - Foot fracture [Unknown]
  - Type 2 diabetes mellitus [Unknown]
  - Road traffic accident [Unknown]
  - Spinal osteoarthritis [Unknown]
  - Dizziness [Recovering/Resolving]
  - Femur fracture [Unknown]
  - Anxiety [Unknown]
  - Depression [Unknown]
  - Tooth extraction [Unknown]
  - Inner ear disorder [Unknown]
  - Chondromalacia [Unknown]
  - Gait disturbance [Unknown]
  - Neck pain [Unknown]
  - Hypertension [Unknown]
  - Pain in extremity [Unknown]
  - Hysterectomy [Unknown]
  - Intramedullary rod insertion [Unknown]
  - Fall [Unknown]
  - Cervical spinal stenosis [Unknown]
  - Joint effusion [Unknown]
  - Fall [Unknown]
  - Hypertension [Unknown]
  - Craniocerebral injury [Unknown]
  - Abdominal injury [Unknown]
  - Fatigue [Unknown]
  - Back pain [Unknown]
  - Arthralgia [Unknown]
  - Open reduction of fracture [Unknown]
  - Vitamin D deficiency [Unknown]
  - Ataxia [Unknown]
  - Osteopenia [Unknown]
  - Electrocardiogram ST-T change [Unknown]
  - Hypoaesthesia [Unknown]
  - Closed fracture manipulation [Unknown]
  - Scoliosis [Not Recovered/Not Resolved]
  - Skin abrasion [Unknown]
  - Back injury [Unknown]
  - Facial bones fracture [Unknown]
  - Sternal fracture [Unknown]
  - Fall [Unknown]
  - Rotator cuff syndrome [Unknown]
  - Chest injury [Unknown]
  - Blood cholesterol increased [Unknown]
  - Musculoskeletal pain [Unknown]
  - Arthralgia [Unknown]
  - Bursitis [Unknown]
  - Sinus tachycardia [Unknown]
  - Foot operation [Unknown]
  - Femur fracture [Unknown]
  - Fall [Unknown]
  - Osteoarthritis [Unknown]
  - Cardiac failure congestive [Unknown]
  - Contusion [Unknown]
  - Vertigo [Unknown]
  - Headache [Unknown]

NARRATIVE: CASE EVENT DATE: 1995
